FAERS Safety Report 21043850 (Version 2)
Quarter: 2022Q3

REPORT INFORMATION
  Report Type: Report from Study
  Country: CA (occurrence: CA)
  Receive Date: 20220705
  Receipt Date: 20220916
  Transmission Date: 20221026
  Serious: Yes (Hospitalization, Other)
  Sender: FDA-Public Use
  Company Number: CA-PFIZER INC-202200916231

PATIENT
  Age: 76 Year
  Sex: Female

DRUGS (44)
  1. LEVOFLOXACIN [Suspect]
     Active Substance: LEVOFLOXACIN
     Dosage: UNK
     Route: 065
  2. OMALIZUMAB [Suspect]
     Active Substance: OMALIZUMAB
     Indication: Asthma
     Dosage: 375 MG, (1 EVERY 2 WEEKS)
     Route: 058
  3. OMALIZUMAB [Suspect]
     Active Substance: OMALIZUMAB
     Dosage: 375 MG, (1 EVERY 2 WEEKS)
     Route: 058
  4. OMALIZUMAB [Suspect]
     Active Substance: OMALIZUMAB
     Dosage: 375 MG, (1 EVERY 2 WEEKS)
     Route: 058
  5. OMALIZUMAB [Suspect]
     Active Substance: OMALIZUMAB
     Dosage: UNK
     Route: 058
  6. OMALIZUMAB [Suspect]
     Active Substance: OMALIZUMAB
     Dosage: UNK
     Route: 058
  7. OMALIZUMAB [Suspect]
     Active Substance: OMALIZUMAB
     Dosage: UNK
     Route: 058
  8. OMALIZUMAB [Suspect]
     Active Substance: OMALIZUMAB
     Dosage: UNK
     Route: 058
  9. OMALIZUMAB [Suspect]
     Active Substance: OMALIZUMAB
     Dosage: UNK
     Route: 058
  10. OMALIZUMAB [Suspect]
     Active Substance: OMALIZUMAB
     Dosage: UNK
     Route: 058
  11. OMALIZUMAB [Suspect]
     Active Substance: OMALIZUMAB
     Dosage: UNK
     Route: 058
  12. OMALIZUMAB [Suspect]
     Active Substance: OMALIZUMAB
     Dosage: 375 MG, (1 EVERY 2 WEEKS)
     Route: 058
  13. OMALIZUMAB [Suspect]
     Active Substance: OMALIZUMAB
     Dosage: UNK
     Route: 058
  14. OMALIZUMAB [Suspect]
     Active Substance: OMALIZUMAB
     Dosage: UNK
     Route: 058
  15. OMALIZUMAB [Suspect]
     Active Substance: OMALIZUMAB
     Dosage: UNK
     Route: 058
  16. OMALIZUMAB [Suspect]
     Active Substance: OMALIZUMAB
     Dosage: UNK
     Route: 058
  17. OMALIZUMAB [Suspect]
     Active Substance: OMALIZUMAB
     Dosage: 375 MG, (1 EVERY 2 WEEKS)
     Route: 058
  18. OMALIZUMAB [Suspect]
     Active Substance: OMALIZUMAB
     Dosage: 375 MG, (1 EVERY 2 WEEKS)
     Route: 058
  19. OMALIZUMAB [Suspect]
     Active Substance: OMALIZUMAB
     Dosage: UNK
     Route: 058
  20. OMALIZUMAB [Suspect]
     Active Substance: OMALIZUMAB
     Dosage: UNK
     Route: 058
  21. OMALIZUMAB [Suspect]
     Active Substance: OMALIZUMAB
     Dosage: UNK
     Route: 058
  22. OMALIZUMAB [Suspect]
     Active Substance: OMALIZUMAB
     Dosage: UNK
     Route: 058
  23. OMALIZUMAB [Suspect]
     Active Substance: OMALIZUMAB
     Dosage: UNK
     Route: 058
  24. OMALIZUMAB [Suspect]
     Active Substance: OMALIZUMAB
     Dosage: UNK
     Route: 058
  25. OMALIZUMAB [Suspect]
     Active Substance: OMALIZUMAB
     Dosage: UNK
     Route: 058
  26. OMALIZUMAB [Suspect]
     Active Substance: OMALIZUMAB
     Dosage: UNK
     Route: 058
  27. OMALIZUMAB [Suspect]
     Active Substance: OMALIZUMAB
     Dosage: 375 MG, (1 EVERY 2 WEEKS)
     Route: 058
  28. OMALIZUMAB [Suspect]
     Active Substance: OMALIZUMAB
     Dosage: UNK
     Route: 058
  29. OMALIZUMAB [Suspect]
     Active Substance: OMALIZUMAB
     Dosage: UNK
     Route: 058
  30. OMALIZUMAB [Suspect]
     Active Substance: OMALIZUMAB
     Dosage: UNK
     Route: 058
  31. OMALIZUMAB [Suspect]
     Active Substance: OMALIZUMAB
     Dosage: UNK
     Route: 058
  32. OMALIZUMAB [Suspect]
     Active Substance: OMALIZUMAB
     Dosage: UNK
     Route: 065
  33. OMALIZUMAB [Suspect]
     Active Substance: OMALIZUMAB
     Indication: Asthma
     Dosage: 375 MG, (1 EVERY 2 WEEKS)
     Route: 058
  34. ACETYLSALICYLIC ACID/CODEINE [Concomitant]
     Dosage: UNK
     Route: 065
  35. ALVESCO [Concomitant]
     Active Substance: CICLESONIDE
     Dosage: 2 DF, 2X/DAY (AEROSOL, METERED DOSE)
     Route: 065
  36. BUDESONIDE\FORMOTEROL FUMARATE [Concomitant]
     Active Substance: BUDESONIDE\FORMOTEROL FUMARATE
     Dosage: 2 DF, 2X/DAY
     Route: 065
  37. CORTEF [Concomitant]
     Active Substance: HYDROCORTISONE
     Dosage: UNK
     Route: 065
  38. HYDROCHLOROTHIAZIDE\QUINAPRIL HYDROCHLORIDE [Concomitant]
     Active Substance: HYDROCHLOROTHIAZIDE\QUINAPRIL HYDROCHLORIDE
     Indication: Hypertension
     Dosage: UNK
     Route: 065
  39. HYDROCHLOROTHIAZIDE\QUINAPRIL HYDROCHLORIDE [Concomitant]
     Active Substance: HYDROCHLOROTHIAZIDE\QUINAPRIL HYDROCHLORIDE
     Dosage: UNK
     Route: 065
  40. LASIX [Concomitant]
     Active Substance: FUROSEMIDE
     Indication: Joint swelling
     Dosage: 60 MG, 1X/DAY
     Route: 065
  41. SPIRIVA [Concomitant]
     Active Substance: TIOTROPIUM BROMIDE MONOHYDRATE
     Dosage: 2 DF, 1X/DAY
     Route: 055
  42. PANTOPRAZOLE MAGNESIUM [Concomitant]
     Active Substance: PANTOPRAZOLE MAGNESIUM
     Dosage: UNK
     Route: 065
  43. VENTOLIN [Concomitant]
     Active Substance: ALBUTEROL SULFATE
     Dosage: 2 DF
     Route: 065
  44. VENTOLIN [Concomitant]
     Active Substance: ALBUTEROL SULFATE
     Dosage: 6 DF, 1X/DAY
     Route: 065

REACTIONS (22)
  - Asthma [Recovered/Resolved]
  - Blood pressure diastolic decreased [Recovered/Resolved]
  - Blood pressure increased [Recovered/Resolved]
  - Drug hypersensitivity [Recovered/Resolved]
  - Hypoventilation [Recovered/Resolved]
  - Illness [Recovered/Resolved]
  - Insomnia [Recovered/Resolved]
  - Joint swelling [Recovered/Resolved]
  - Disease recurrence [Recovered/Resolved]
  - Lower respiratory tract infection [Recovered/Resolved]
  - Middle insomnia [Recovered/Resolved]
  - Nasopharyngitis [Recovered/Resolved]
  - Obstructive airways disorder [Recovered/Resolved]
  - Oedema peripheral [Recovered/Resolved]
  - Respiratory distress [Recovered/Resolved]
  - Sinusitis [Recovered/Resolved]
  - Weight decreased [Recovered/Resolved]
  - Weight increased [Recovered/Resolved]
  - Wound [Recovered/Resolved]
  - Fall [Recovered/Resolved]
  - Localised infection [Recovered/Resolved]
  - Pain in extremity [Recovered/Resolved]
